FAERS Safety Report 7789375-3 (Version None)
Quarter: 2011Q3

REPORT INFORMATION
  Report Type: 
  Country: None (occurrence: None)
  Receive Date: 20110930
  Receipt Date: 20110923
  Transmission Date: 20111222
  Serious: Yes (Hospitalization)
  Sender: FDA-Public Use
  Company Number: BR-GLAXOSMITHKLINE-B0751853A

PATIENT
  Sex: Male
  Weight: 62 kg

DRUGS (8)
  1. VENALOT [Concomitant]
     Route: 061
  2. PROPAFENONE HCL [Suspect]
     Indication: HEART RATE
     Dosage: 300MG VARIABLE DOSE
     Route: 048
  3. LUMIGAN [Concomitant]
     Indication: GLAUCOMA
     Route: 047
  4. VENALOT [Concomitant]
     Indication: VARICOSE VEIN
     Dosage: 1TAB PER DAY
     Route: 048
  5. ASPIRIN [Concomitant]
     Indication: ANTICOAGULANT THERAPY
     Dosage: 1TAB PER DAY
     Route: 048
     Dates: end: 20110606
  6. CRESTOR [Concomitant]
     Indication: BLOOD CHOLESTEROL
     Dosage: 10MG AT NIGHT
     Route: 048
  7. COUMADIN [Concomitant]
     Indication: COAGULOPATHY
     Dosage: 1MG AT NIGHT
     Route: 048
     Dates: start: 20110606
  8. SIMVASTATIN [Concomitant]
     Indication: BLOOD CHOLESTEROL

REACTIONS (4)
  - FALL [None]
  - HEART RATE IRREGULAR [None]
  - FOOT FRACTURE [None]
  - THROMBOSIS [None]
